FAERS Safety Report 7784739-6 (Version None)
Quarter: 2011Q3

REPORT INFORMATION
  Report Type: 
  Country: None (occurrence: None)
  Receive Date: 20110928
  Receipt Date: 20110919
  Transmission Date: 20111222
  Serious: Yes (Other)
  Sender: FDA-Public Use
  Company Number: US-ASTRAZENECA-2011SE14120

PATIENT
  Age: 83 Year
  Sex: Male

DRUGS (5)
  1. NEXIUM [Suspect]
     Route: 048
  2. ACCUPRIL [Concomitant]
  3. PLAVIX [Concomitant]
  4. PRILOSEC [Suspect]
     Route: 048
  5. LIPITOR [Concomitant]

REACTIONS (4)
  - CORONARY ARTERY OCCLUSION [None]
  - BLOOD CHOLESTEROL INCREASED [None]
  - CARDIAC FAILURE CONGESTIVE [None]
  - BACK PAIN [None]
